FAERS Safety Report 10394258 (Version 1)
Quarter: 2014Q3

REPORT INFORMATION
  Report Type: Spontaneous
  Country: BR (occurrence: BR)
  Receive Date: 20140819
  Receipt Date: 20140819
  Transmission Date: 20150326
  Serious: Yes (Other)
  Sender: FDA-Public Use
  Company Number: BR-DSJP-DSU-2014-118634

PATIENT

DRUGS (1)
  1. OLMETEC HCT [Suspect]
     Active Substance: HYDROCHLOROTHIAZIDE\OLMESARTAN MEDOXOMIL
     Indication: PRODUCT USED FOR UNKNOWN INDICATION
     Dosage: 20/12.5MG, UNK
     Route: 048

REACTIONS (4)
  - Angioplasty [Unknown]
  - Catheterisation cardiac [Unknown]
  - Cerebrovascular accident [Unknown]
  - Unevaluable event [Unknown]

NARRATIVE: CASE EVENT DATE: 2011
